FAERS Safety Report 9337894 (Version 2)
Quarter: 2013Q3

REPORT INFORMATION
  Report Type: Spontaneous
  Country: US (occurrence: US)
  Receive Date: 20130608
  Receipt Date: 20130724
  Transmission Date: 20140515
  Serious: No
  Sender: FDA-Public Use
  Company Number: US-009507513-1306USA003696

PATIENT
  Age: 37 Year
  Sex: Male
  Weight: 70.3 kg

DRUGS (2)
  1. CLARITIN REDITABS [Suspect]
     Indication: SEASONAL ALLERGY
     Dosage: 10 MG, PRN
     Route: 048
     Dates: start: 20130401, end: 20130515
  2. CLARITIN REDITABS [Suspect]
     Indication: SNEEZING

REACTIONS (1)
  - Drug ineffective [Unknown]
